FAERS Safety Report 7909177-4 (Version None)
Quarter: 2011Q4

REPORT INFORMATION
  Report Type: 
  Country: None (occurrence: None)
  Receive Date: 20111111
  Receipt Date: 20110525
  Transmission Date: 20120403
  Serious: No
  Sender: FDA-Public Use
  Company Number: US-GLAXOSMITHKLINE-A0929133A

PATIENT
  Age: 55 Year
  Sex: Male

DRUGS (12)
  1. LEVOTHYROXINE SODIUM [Concomitant]
  2. METFORMIN HCL [Concomitant]
  3. ACTOS [Concomitant]
  4. FENOFIBRATE [Concomitant]
  5. AMLODIPINE [Concomitant]
  6. FUROSEMIDE [Concomitant]
  7. PLAVIX [Concomitant]
  8. LOVAZA [Concomitant]
  9. CARVEDILOL [Suspect]
     Indication: HYPERTENSION
     Dosage: 4TAB TWICE PER DAY
     Route: 048
     Dates: start: 20080101
  10. CRESTOR [Concomitant]
  11. JANUVIA [Concomitant]
  12. LOSARTAN [Concomitant]

REACTIONS (3)
  - DIZZINESS [None]
  - FEELING ABNORMAL [None]
  - ABDOMINAL DISCOMFORT [None]
